FAERS Safety Report 12778288 (Version 1)
Quarter: 2016Q3

REPORT INFORMATION
  Report Type: Report from Study
  Country: CA (occurrence: CA)
  Receive Date: 20160926
  Receipt Date: 20160926
  Transmission Date: 20161109
  Serious: Yes (Hospitalization)
  Sender: FDA-Public Use
  Company Number: CA-AMGEN-CANSL2016128651

PATIENT
  Age: 69 Year
  Sex: Male

DRUGS (3)
  1. METHOTREXATE. [Concomitant]
     Active Substance: METHOTREXATE
     Dosage: UNK
  2. ENBREL [Suspect]
     Active Substance: ETANERCEPT
     Indication: RHEUMATOID ARTHRITIS
     Dosage: 50 MG/ML, UNK
     Route: 065
     Dates: start: 20121031
  3. SANDOZ SOLIFENACIN [Concomitant]
     Dosage: UNK

REACTIONS (6)
  - Arthralgia [Unknown]
  - Gait disturbance [Unknown]
  - Panic attack [Recovering/Resolving]
  - Pain in extremity [Unknown]
  - Pulmonary mass [Unknown]
  - Speech disorder [Unknown]

NARRATIVE: CASE EVENT DATE: 201607
